FAERS Safety Report 6377159-2 (Version None)
Quarter: 2009Q3

REPORT INFORMATION
  Report Type: 
  Country: None (occurrence: None)
  Receive Date: 20090923
  Receipt Date: 20090923
  Transmission Date: 20100115
  Serious: Yes (Hospitalization)
  Sender: FDA-Public Use
  Company Number: None

PATIENT
  Age: 32 Year
  Sex: Female
  Weight: 71.8 kg

DRUGS (8)
  1. ACETAMINOPHEN [Suspect]
     Indication: PAIN
  2. MORPHINE [Concomitant]
  3. TROZADINE [Concomitant]
  4. TORAZEPAM [Concomitant]
  5. DILANTIN [Concomitant]
  6. CLOPIDOGREL [Concomitant]
  7. ASPIRIN [Concomitant]
  8. MIDODRINE HYDROCHLORIDE [Concomitant]

REACTIONS (11)
  - ALANINE AMINOTRANSFERASE INCREASED [None]
  - ASPARTATE AMINOTRANSFERASE INCREASED [None]
  - BRAIN OEDEMA [None]
  - COMA [None]
  - HEPATIC ENCEPHALOPATHY [None]
  - HYPERNATRAEMIA [None]
  - HYPOTENSION [None]
  - INCORRECT DOSE ADMINISTERED [None]
  - INTERNATIONAL NORMALISED RATIO INCREASED [None]
  - RENAL FAILURE ACUTE [None]
  - SOMNOLENCE [None]
